FAERS Safety Report 4532087-X (Version None)
Quarter: 2004Q4

REPORT INFORMATION
  Report Type: 
  Country: None (occurrence: None)
  Receive Date: 20041217
  Receipt Date: 20041208
  Transmission Date: 20050328
  Serious: Yes (Hospitalization)
  Sender: FDA-Public Use
  Company Number: 2004-12-0287

PATIENT
  Age: 57 Year
  Sex: Male

DRUGS (4)
  1. INTRON A [Suspect]
     Indication: RENAL CELL CARCINOMA STAGE UNSPECIFIED
     Dosage: 10 MIU TIW SUBCUTANEOUS
     Route: 058
     Dates: start: 20040722, end: 20041124
  2. BISOPROLOL FUMARATE [Concomitant]
  3. RANITIDINE [Concomitant]
  4. PARACETAMOL [Concomitant]

REACTIONS (2)
  - ANAEMIA [None]
  - SCIATICA [None]
